FAERS Safety Report 17676544 (Version 1)
Quarter: 2020Q2

REPORT INFORMATION
  Report Type: Spontaneous
  Country: US (occurrence: US)
  Receive Date: 20200416
  Receipt Date: 20200416
  Transmission Date: 20200714
  Serious: No
  Sender: FDA-Public Use
  Company Number: None

PATIENT
  Age: 44 Year
  Sex: Male

DRUGS (1)
  1. DUREZOL [Suspect]
     Active Substance: DIFLUPREDNATE
     Route: 047
     Dates: start: 20200116, end: 20200416

REACTIONS (3)
  - Lacrimation increased [None]
  - Instillation site pain [None]
  - Photophobia [None]

NARRATIVE: CASE EVENT DATE: 20200416
